FAERS Safety Report 4831935-3 (Version None)
Quarter: 2005Q4

REPORT INFORMATION
  Report Type: 
  Country: None (occurrence: None)
  Receive Date: 20051116
  Receipt Date: 20051031
  Transmission Date: 20060501
  Serious: Yes (Hospitalization)
  Sender: FDA-Public Use
  Company Number: S05-SWI-04959-01

PATIENT
  Age: 57 Year
  Sex: Male

DRUGS (4)
  1. CITALOPRAM HYDROBROMIDE [Suspect]
     Indication: OBSESSIVE-COMPULSIVE DISORDER
     Dosage: 20 MG QD PO
     Route: 048
     Dates: start: 20050124, end: 20050316
  2. CITALOPRAM HYDROBROMIDE [Suspect]
     Indication: OBSESSIVE-COMPULSIVE DISORDER
     Dosage: 80 MG QD PO
     Route: 048
     Dates: start: 20050124, end: 20050316
  3. REMERON [Suspect]
     Indication: OBSESSIVE-COMPULSIVE DISORDER
     Dosage: 15 MG QD PO
     Route: 048
     Dates: start: 20050216, end: 20050316
  4. ZYPREXA [Suspect]
     Indication: OBSESSIVE-COMPULSIVE DISORDER
     Dosage: 10 MG PO
     Route: 048
     Dates: start: 20050224, end: 20050316

REACTIONS (4)
  - ABDOMINAL ADHESIONS [None]
  - BOWEL SOUNDS ABNORMAL [None]
  - ILEUS [None]
  - INTESTINAL STRANGULATION [None]
